FAERS Safety Report 10248008 (Version 1)
Quarter: 2014Q2

REPORT INFORMATION
  Report Type: Report from Study
  Country: AR (occurrence: AR)
  Receive Date: 20140619
  Receipt Date: 20140619
  Transmission Date: 20141212
  Serious: Yes (Death, Hospitalization)
  Sender: FDA-Public Use
  Company Number: PHHY2014AR076207

PATIENT
  Sex: Female

DRUGS (1)
  1. DIOVAN [Suspect]
     Dosage: 1 TABLET (160 MG), DAILY
     Route: 048
     Dates: start: 2012

REACTIONS (2)
  - Concomitant disease progression [Fatal]
  - Systemic lupus erythematosus [Fatal]
